FAERS Safety Report 8458931-1 (Version None)
Quarter: 2012Q2

REPORT INFORMATION
  Report Type: 
  Country: None (occurrence: None)
  Receive Date: 20120622
  Receipt Date: 20120613
  Transmission Date: 20120825
  Serious: Yes (Hospitalization)
  Sender: FDA-Public Use
  Company Number: MX-SANOFI-AVENTIS-2012SA042621

PATIENT
  Age: 43 Year
  Sex: Female
  Weight: 56 kg

DRUGS (4)
  1. ARAVA [Suspect]
     Indication: RHEUMATOID ARTHRITIS
     Route: 048
     Dates: start: 20060101, end: 20120428
  2. ARAVA [Suspect]
     Route: 048
     Dates: start: 20120501
  3. VOLTAREN [Concomitant]
     Indication: RHEUMATOID ARTHRITIS
     Route: 048
     Dates: start: 20060101, end: 20120428
  4. VOLTAREN [Concomitant]
     Route: 048
     Dates: start: 20120501

REACTIONS (3)
  - OVARIAN CYST [None]
  - NODULE [None]
  - APPENDICITIS [None]
